FAERS Safety Report 9482442 (Version 1)
Quarter: 2013Q3

REPORT INFORMATION
  Report Type: Spontaneous
  Country: CA (occurrence: None)
  Receive Date: 20130822
  Receipt Date: 20130822
  Transmission Date: 20140515
  Serious: Yes (Other)
  Sender: FDA-Public Use
  Company Number: 2013AP007334

PATIENT
  Age: 68 Year
  Sex: Female

DRUGS (2)
  1. KETOROLAC TROMETHAMINE [Suspect]
     Dosage: 10MG;PRN
     Route: 048
  2. PREMARIN (EXTROGENS CONJUGATED) [Concomitant]

REACTIONS (3)
  - Tachycardia [None]
  - Dizziness [None]
  - Hypoaesthesia [None]
